FAERS Safety Report 23956939 (Version 2)
Quarter: 2024Q3

REPORT INFORMATION
  Report Type: Spontaneous
  Country: US (occurrence: US)
  Receive Date: 20240610
  Receipt Date: 20240726
  Transmission Date: 20241017
  Serious: No
  Sender: PFIZER
  Company Number: US-PFIZER INC-202400187142

PATIENT
  Age: 68 Year
  Sex: Female

DRUGS (3)
  1. TUKYSA [Suspect]
     Active Substance: TUCATINIB
     Dosage: 2 PILLS THE 1ST DAY
  2. TUKYSA [Suspect]
     Active Substance: TUCATINIB
     Dosage: 2 DF
  3. TUKYSA [Suspect]
     Active Substance: TUCATINIB
     Dosage: 4 TABLETS OF 50MG TWICE DAILY

REACTIONS (1)
  - Nasopharyngitis [Unknown]
